FAERS Safety Report 9786074 (Version 1)
Quarter: 2013Q4

REPORT INFORMATION
  Report Type: Spontaneous
  Country: RU (occurrence: RU)
  Receive Date: 20131227
  Receipt Date: 20131227
  Transmission Date: 20140711
  Serious: Yes (Hospitalization)
  Sender: FDA-Public Use
  Company Number: PHHY2013RU152234

PATIENT
  Age: 40 Year
  Sex: Female

DRUGS (7)
  1. TASIGNA [Suspect]
     Route: 048
  2. AMOXICLAV [Concomitant]
     Route: 048
  3. BROMHEXINE [Concomitant]
     Dosage: UNK
  4. DEXAZONE [Concomitant]
     Dosage: UNK
  5. PANANGIN [Concomitant]
  6. WARFARIN [Concomitant]
     Dosage: UNK
  7. TRENTAL [Concomitant]
     Dosage: UNK

REACTIONS (4)
  - Embolism [Recovering/Resolving]
  - Pneumonia [Recovering/Resolving]
  - Pleurisy [Recovering/Resolving]
  - Dyspnoea [Recovering/Resolving]
